FAERS Safety Report 14451327 (Version 2)
Quarter: 2019Q1

REPORT INFORMATION
  Report Type: Spontaneous
  Country: US (occurrence: US)
  Receive Date: 20180129
  Receipt Date: 20190204
  Transmission Date: 20190417
  Serious: No
  Sender: FDA-Public Use
  Company Number: US-ABBVIE-17K-163-2192690-00

PATIENT

DRUGS (1)
  1. HUMIRA [Suspect]
     Active Substance: ADALIMUMAB
     Indication: PRODUCT USED FOR UNKNOWN INDICATION
     Route: 058

REACTIONS (7)
  - Hypoaesthesia [Unknown]
  - Skin odour abnormal [Unknown]
  - Condition aggravated [Unknown]
  - Condition aggravated [Recovered/Resolved]
  - Mobility decreased [Unknown]
  - Wound complication [Unknown]
  - Paraesthesia [Unknown]
